FAERS Safety Report 9454542 (Version 1)
Quarter: 2013Q3

REPORT INFORMATION
  Report Type: Spontaneous
  Country: DE (occurrence: DE)
  Receive Date: 20130812
  Receipt Date: 20130812
  Transmission Date: 20140515
  Serious: Yes (Other)
  Sender: FDA-Public Use
  Company Number: DE-UCBSA-094097

PATIENT
  Age: 16 Year
  Sex: Female

DRUGS (2)
  1. KEPPRA [Suspect]
     Indication: EPILEPSY
     Route: 048
  2. FOLSAURE [Concomitant]
     Indication: NEURAL TUBE DEFECT
     Dates: start: 200502, end: 200503

REACTIONS (3)
  - Premature rupture of membranes [Recovered/Resolved]
  - Abortion late [Recovered/Resolved]
  - Pregnancy [Recovered/Resolved]
